FAERS Safety Report 6023096-2 (Version None)
Quarter: 2008Q4

REPORT INFORMATION
  Report Type: 
  Country: None (occurrence: None)
  Receive Date: 20081222
  Receipt Date: 20080917
  Transmission Date: 20090506
  Serious: No
  Sender: FDA-Public Use
  Company Number: ALL1-2008-02660

PATIENT
  Age: 42 Year
  Sex: Female
  Weight: 72.6 kg

DRUGS (4)
  1. VYVANSE [Suspect]
     Indication: ATTENTION DEFICIT/HYPERACTIVITY DISORDER
     Dosage: 50 MG, 1X/DAY:QD, ORAL
     Route: 048
     Dates: start: 20080701, end: 20080830
  2. VYVANSE [Suspect]
     Indication: ATTENTION DEFICIT/HYPERACTIVITY DISORDER
     Dosage: 50 MG, 1X/DAY:QD, ORAL
     Route: 048
     Dates: start: 20080902
  3. YASMIN [Concomitant]
  4. AMBIEN [Concomitant]

REACTIONS (5)
  - ABDOMINAL DISCOMFORT [None]
  - ARTHRALGIA [None]
  - ARTHRITIS [None]
  - GASTROOESOPHAGEAL REFLUX DISEASE [None]
  - METRORRHAGIA [None]
